FAERS Safety Report 6647576-1 (Version None)
Quarter: 2010Q1

REPORT INFORMATION
  Report Type: 
  Country: None (occurrence: None)
  Receive Date: 20100323
  Receipt Date: 20100323
  Transmission Date: 20100710
  Serious: No
  Sender: FDA-Public Use
  Company Number: None

PATIENT
  Age: 34 Year
  Sex: Male
  Weight: 120 kg

DRUGS (1)
  1. LAMOTRIGINE [Suspect]
     Indication: CONVULSION
     Dosage: 200 MG BID PO
     Route: 048
     Dates: start: 20090421, end: 20100322

REACTIONS (5)
  - DIZZINESS [None]
  - DRUG INTOLERANCE [None]
  - FEELING ABNORMAL [None]
  - HEADACHE [None]
  - PRODUCT SUBSTITUTION ISSUE [None]
